FAERS Safety Report 8074062-7 (Version None)
Quarter: 2012Q1

REPORT INFORMATION
  Report Type: 
  Country: None (occurrence: None)
  Receive Date: 20120126
  Receipt Date: 20120124
  Transmission Date: 20120608
  Serious: Yes (Life-Threatening)
  Sender: FDA-Public Use
  Company Number: VE-ABBOTT-11P-178-0862192-00

PATIENT
  Sex: Female
  Weight: 88 kg

DRUGS (2)
  1. HUMIRA [Suspect]
     Dates: start: 20111220
  2. HUMIRA [Suspect]
     Indication: RHEUMATOID ARTHRITIS
     Route: 058
     Dates: start: 20090729, end: 20110922

REACTIONS (1)
  - TUBERCULIN TEST POSITIVE [None]
